FAERS Safety Report 16766603 (Version 1)
Quarter: 2019Q3

REPORT INFORMATION
  Report Type: Report from Study
  Country: FI (occurrence: FI)
  Receive Date: 20190903
  Receipt Date: 20190903
  Transmission Date: 20191005
  Serious: Yes (Life-Threatening, Hospitalization, Other)
  Sender: FDA-Public Use
  Company Number: FI-RECRO GAINESVILLE LLC-REPH-2019-000167

PATIENT
  Age: 30 Year
  Sex: Male

DRUGS (2)
  1. VERAPAMIL HYDROCHLORIDE SUSTAINED RELEASE [Suspect]
     Active Substance: VERAPAMIL HYDROCHLORIDE
     Indication: TACHYCARDIA
     Dosage: 80 TO 90- 80MG TABLETS, ONE TIME DOSE
     Route: 048
  2. MEDAZEPAM [Suspect]
     Active Substance: MEDAZEPAM
     Indication: DEPRESSION
     Dosage: 80- 5 MILLIGRAM TABLETS; ONE TIME DOSE
     Route: 048

REACTIONS (8)
  - Hypotension [Recovered/Resolved]
  - Vomiting [Recovered/Resolved]
  - Cardiac arrest [Recovered/Resolved]
  - Loss of consciousness [Recovered/Resolved]
  - Off label use [Unknown]
  - Poisoning [Recovered/Resolved]
  - Atrioventricular block complete [Recovered/Resolved]
  - Intentional overdose [Recovered/Resolved]
